FAERS Safety Report 7267944-7 (Version None)
Quarter: 2011Q1

REPORT INFORMATION
  Report Type: 
  Country: None (occurrence: None)
  Receive Date: 20110201
  Receipt Date: 20110119
  Transmission Date: 20110831
  Serious: Yes (Other)
  Sender: FDA-Public Use
  Company Number: IL-NAPPMUNDI-GBR-2011-0007633

PATIENT
  Age: 69 Year
  Sex: Female

DRUGS (5)
  1. BUTRANS [Suspect]
     Indication: PAIN
     Dosage: 20 MCG, Q1H
     Route: 062
     Dates: start: 20080101
  2. MIACALCIN [Concomitant]
     Indication: PRODUCT USED FOR UNKNOWN INDICATION
     Dosage: 200 IU, UNK
     Route: 045
  3. ART                                /00761001/ [Concomitant]
     Indication: PRODUCT USED FOR UNKNOWN INDICATION
     Dosage: 50 MG, UNK
     Route: 048
  4. CIPRALEX [Concomitant]
     Indication: PRODUCT USED FOR UNKNOWN INDICATION
     Dosage: 20 MG, UNK
     Route: 048
  5. CANNABIS [Concomitant]
     Indication: PRODUCT USED FOR UNKNOWN INDICATION

REACTIONS (2)
  - RASH [None]
  - BLISTER [None]
